FAERS Safety Report 8934480 (Version 1)
Quarter: 2012Q4

REPORT INFORMATION
  Report Type: 
  Country: US (occurrence: US)
  Receive Date: 20121129
  Receipt Date: 20121129
  Transmission Date: 20130627
  Serious: No
  Sender: FDA-Public Use
  Company Number: US-GLAXOSMITHKLINE-A0947548A

PATIENT
  Age: 68 Year
  Sex: Female

DRUGS (4)
  1. FLOVENT [Suspect]
     Indication: COUGH
     Dosage: 1PUFF Per day
     Route: 055
     Dates: start: 20110920, end: 20111002
  2. MUCINEX [Concomitant]
  3. SIMVASTATIN [Concomitant]
  4. ATENOLOL [Concomitant]

REACTIONS (1)
  - Tongue ulceration [Recovering/Resolving]
